FAERS Safety Report 18933370 (Version 1)
Quarter: 2021Q1

REPORT INFORMATION
  Report Type: Spontaneous
  Country: US (occurrence: US)
  Receive Date: 20210224
  Receipt Date: 20210224
  Transmission Date: 20210420
  Serious: No
  Sender: FDA-Public Use
  Company Number: None

PATIENT
  Age: 57 Year
  Sex: Female
  Weight: 87.4 kg

DRUGS (10)
  1. ENOXAPARIN 40MG SUBCUT DAILY [Concomitant]
     Dates: start: 20200902, end: 20200909
  2. BACLOFEN 20MG BID [Concomitant]
     Dates: start: 20200901, end: 20200909
  3. GABAPENTIN 600MG QAM AND 1500MG QHS [Concomitant]
     Dates: start: 20200902, end: 20200909
  4. DIAZEPAM 2MG QHS [Concomitant]
     Dates: start: 20200902, end: 20200909
  5. DEXAMETHASONE 6MG PO DAILY [Concomitant]
     Active Substance: DEXAMETHASONE
     Dates: start: 20200902, end: 20200909
  6. BENZONATATE 100MG PO TID [Concomitant]
     Dates: start: 20200903, end: 20200909
  7. REMDESIVIR. [Suspect]
     Active Substance: REMDESIVIR
     Indication: COVID-19
     Route: 040
     Dates: start: 20200902, end: 20200904
  8. PANTOPRAZOLE 40MG PO DAILY [Concomitant]
     Dates: start: 20200902, end: 20200909
  9. ROBITUSSIN DM 10ML Q4HR PRN COUGH [Concomitant]
     Dates: start: 20200902, end: 20200909
  10. ASCORBIC ACID 250MG PO DAILY [Concomitant]
     Dates: start: 20200902, end: 20200909

REACTIONS (1)
  - Liver function test increased [None]

NARRATIVE: CASE EVENT DATE: 20200904
